FAERS Safety Report 19043991 (Version 1)
Quarter: 2021Q1

REPORT INFORMATION
  Report Type: Spontaneous
  Country: US (occurrence: US)
  Receive Date: 20210323
  Receipt Date: 20210323
  Transmission Date: 20210420
  Serious: Yes (Other)
  Sender: FDA-Public Use
  Company Number: US-DRREDDYS-USA/USA/21/0133230

PATIENT
  Age: 4 Year
  Sex: Male

DRUGS (1)
  1. BORTEZOMIB. [Suspect]
     Active Substance: BORTEZOMIB
     Indication: GRAFT VERSUS HOST DISEASE IN LIVER
     Dosage: DOSE RANGE: 0.4?0.87 MG/M2

REACTIONS (1)
  - Drug ineffective [Unknown]
